FAERS Safety Report 13285133 (Version 2)
Quarter: 2017Q1

REPORT INFORMATION
  Report Type: Spontaneous
  Country: AU (occurrence: AU)
  Receive Date: 20170301
  Receipt Date: 20170302
  Transmission Date: 20170428
  Serious: Yes (Hospitalization)
  Sender: FDA-Public Use
  Company Number: AU-EMD SERONO-8144792

PATIENT
  Sex: Female

DRUGS (1)
  1. REBIF [Suspect]
     Active Substance: INTERFERON BETA-1A
     Indication: MULTIPLE SCLEROSIS
     Dosage: LAST INJECTION WAS ON 2 WEEKS AGO (AS OF 20 FEB 2017)

REACTIONS (4)
  - Drug dose omission [Unknown]
  - Back disorder [Unknown]
  - Device failure [Unknown]
  - Breast cancer female [Unknown]

NARRATIVE: CASE EVENT DATE: 201702
